FAERS Safety Report 20821966 (Version 1)
Quarter: 2022Q2

REPORT INFORMATION
  Report Type: Spontaneous
  Country: US (occurrence: None)
  Receive Date: 20220512
  Receipt Date: 20220512
  Transmission Date: 20220721
  Serious: Yes (Death)
  Sender: FDA-Public Use
  Company Number: None

PATIENT
  Age: 69 Year
  Sex: Female

DRUGS (1)
  1. INLYTA [Suspect]
     Active Substance: AXITINIB
     Dosage: 5MG DAILY ORAL?
     Route: 048
     Dates: start: 202111, end: 202205

REACTIONS (1)
  - Disease progression [None]

NARRATIVE: CASE EVENT DATE: 20220501
